FAERS Safety Report 5194316-1 (Version None)
Quarter: 2006Q4

REPORT INFORMATION
  Report Type: 
  Country: None (occurrence: None)
  Receive Date: 20061228
  Receipt Date: 20061205
  Transmission Date: 20070319
  Serious: Yes (Hospitalization, Other)
  Sender: FDA-Public Use
  Company Number: FR-PFIZER INC-2006150067

PATIENT
  Sex: Female
  Weight: 54 kg

DRUGS (5)
  1. LYRICA [Suspect]
     Indication: ARTHRALGIA
     Route: 048
     Dates: start: 20061109, end: 20061125
  2. LYRICA [Suspect]
     Indication: NEURALGIA
  3. ZOLOFT [Concomitant]
     Indication: DEPRESSION
     Route: 048
  4. TRAMADOL HCL [Concomitant]
     Indication: PAIN
     Route: 048
  5. ZOLPIDEM TARTRATE [Concomitant]
     Indication: INSOMNIA
     Route: 048

REACTIONS (6)
  - ANXIETY [None]
  - ARTHRALGIA [None]
  - HALLUCINATION [None]
  - MYALGIA [None]
  - PALPITATIONS [None]
  - PSYCHOMOTOR HYPERACTIVITY [None]
